FAERS Safety Report 25496077 (Version 2)
Quarter: 2025Q3

REPORT INFORMATION
  Report Type: Spontaneous
  Country: GB (occurrence: GB)
  Receive Date: 20250630
  Receipt Date: 20250714
  Transmission Date: 20251020
  Serious: Yes (Hospitalization, Other)
  Sender: MYLAN
  Company Number: None

PATIENT
  Age: 63 Year
  Sex: Male

DRUGS (48)
  1. ATORVASTATIN [Suspect]
     Active Substance: ATORVASTATIN
     Indication: Product used for unknown indication
     Dosage: 20 MILLIGRAM, QD, (OD)
     Dates: start: 20240702, end: 20240703
  2. ATORVASTATIN [Suspect]
     Active Substance: ATORVASTATIN
     Dosage: 20 MILLIGRAM, QD, (OD)
     Route: 065
     Dates: start: 20240702, end: 20240703
  3. ATORVASTATIN [Suspect]
     Active Substance: ATORVASTATIN
     Dosage: 20 MILLIGRAM, QD, (OD)
     Route: 065
     Dates: start: 20240702, end: 20240703
  4. ATORVASTATIN [Suspect]
     Active Substance: ATORVASTATIN
     Dosage: 20 MILLIGRAM, QD, (OD)
     Dates: start: 20240702, end: 20240703
  5. OMEPRAZOLE [Suspect]
     Active Substance: OMEPRAZOLE
     Indication: Product used for unknown indication
     Dosage: 20 MILLIGRAM, QD, (OD)
     Dates: start: 20240702, end: 20240703
  6. OMEPRAZOLE [Suspect]
     Active Substance: OMEPRAZOLE
     Dosage: 20 MILLIGRAM, QD, (OD)
     Route: 065
     Dates: start: 20240702, end: 20240703
  7. OMEPRAZOLE [Suspect]
     Active Substance: OMEPRAZOLE
     Dosage: 20 MILLIGRAM, QD, (OD)
     Route: 065
     Dates: start: 20240702, end: 20240703
  8. OMEPRAZOLE [Suspect]
     Active Substance: OMEPRAZOLE
     Dosage: 20 MILLIGRAM, QD, (OD)
     Dates: start: 20240702, end: 20240703
  9. COMIRNATY (TOZINAMERAN) [Suspect]
     Active Substance: TOZINAMERAN
     Indication: Product used for unknown indication
  10. COMIRNATY (TOZINAMERAN) [Suspect]
     Active Substance: TOZINAMERAN
     Route: 065
  11. COMIRNATY (TOZINAMERAN) [Suspect]
     Active Substance: TOZINAMERAN
     Route: 065
  12. COMIRNATY (TOZINAMERAN) [Suspect]
     Active Substance: TOZINAMERAN
  13. VAXZEVRIA [Suspect]
     Active Substance: AZD-1222
     Indication: Product used for unknown indication
     Route: 065
  14. VAXZEVRIA [Suspect]
     Active Substance: AZD-1222
  15. VAXZEVRIA [Suspect]
     Active Substance: AZD-1222
  16. VAXZEVRIA [Suspect]
     Active Substance: AZD-1222
     Route: 065
  17. VAXZEVRIA [Suspect]
     Active Substance: AZD-1222
     Route: 065
  18. VAXZEVRIA [Suspect]
     Active Substance: AZD-1222
  19. VAXZEVRIA [Suspect]
     Active Substance: AZD-1222
  20. VAXZEVRIA [Suspect]
     Active Substance: AZD-1222
     Route: 065
  21. PREDNISOLONE [Concomitant]
     Active Substance: PREDNISOLONE
     Indication: Chronic obstructive pulmonary disease
  22. PREDNISOLONE [Concomitant]
     Active Substance: PREDNISOLONE
     Route: 065
  23. PREDNISOLONE [Concomitant]
     Active Substance: PREDNISOLONE
     Route: 065
  24. PREDNISOLONE [Concomitant]
     Active Substance: PREDNISOLONE
  25. DOXYCYCLINE [Concomitant]
     Active Substance: DOXYCYCLINE
     Indication: Chronic obstructive pulmonary disease
     Dates: start: 20240701, end: 20240702
  26. DOXYCYCLINE [Concomitant]
     Active Substance: DOXYCYCLINE
     Route: 065
     Dates: start: 20240701, end: 20240702
  27. DOXYCYCLINE [Concomitant]
     Active Substance: DOXYCYCLINE
     Route: 065
     Dates: start: 20240701, end: 20240702
  28. DOXYCYCLINE [Concomitant]
     Active Substance: DOXYCYCLINE
     Dates: start: 20240701, end: 20240702
  29. ASPIRIN [Concomitant]
     Active Substance: ASPIRIN
  30. ASPIRIN [Concomitant]
     Active Substance: ASPIRIN
     Route: 065
  31. ASPIRIN [Concomitant]
     Active Substance: ASPIRIN
     Route: 065
  32. ASPIRIN [Concomitant]
     Active Substance: ASPIRIN
  33. NIFEDIPINE [Concomitant]
     Active Substance: NIFEDIPINE
     Indication: Hypertension
  34. NIFEDIPINE [Concomitant]
     Active Substance: NIFEDIPINE
     Route: 065
  35. NIFEDIPINE [Concomitant]
     Active Substance: NIFEDIPINE
     Route: 065
  36. NIFEDIPINE [Concomitant]
     Active Substance: NIFEDIPINE
  37. BUDESONIDE\FORMOTEROL FUMARATE [Concomitant]
     Active Substance: BUDESONIDE\FORMOTEROL FUMARATE
     Indication: Chronic obstructive pulmonary disease
  38. BUDESONIDE\FORMOTEROL FUMARATE [Concomitant]
     Active Substance: BUDESONIDE\FORMOTEROL FUMARATE
     Route: 065
  39. BUDESONIDE\FORMOTEROL FUMARATE [Concomitant]
     Active Substance: BUDESONIDE\FORMOTEROL FUMARATE
     Route: 065
  40. BUDESONIDE\FORMOTEROL FUMARATE [Concomitant]
     Active Substance: BUDESONIDE\FORMOTEROL FUMARATE
  41. UMECLIDINIUM [Concomitant]
     Active Substance: UMECLIDINIUM
     Indication: Chronic obstructive pulmonary disease
  42. UMECLIDINIUM [Concomitant]
     Active Substance: UMECLIDINIUM
     Route: 065
  43. UMECLIDINIUM [Concomitant]
     Active Substance: UMECLIDINIUM
     Route: 065
  44. UMECLIDINIUM [Concomitant]
     Active Substance: UMECLIDINIUM
  45. ALBUTEROL [Concomitant]
     Active Substance: ALBUTEROL
     Indication: Chronic obstructive pulmonary disease
  46. ALBUTEROL [Concomitant]
     Active Substance: ALBUTEROL
     Route: 065
  47. ALBUTEROL [Concomitant]
     Active Substance: ALBUTEROL
     Route: 065
  48. ALBUTEROL [Concomitant]
     Active Substance: ALBUTEROL

REACTIONS (6)
  - Testicular infarction [Recovered/Resolved with Sequelae]
  - Testicular pain [Unknown]
  - Tenderness [Unknown]
  - Testicular disorder [Unknown]
  - Testicular swelling [Unknown]
  - Abdominal pain [Unknown]

NARRATIVE: CASE EVENT DATE: 20240702
